FAERS Safety Report 4774060-2 (Version None)
Quarter: 2005Q3

REPORT INFORMATION
  Report Type: 
  Country: None (occurrence: None)
  Receive Date: 20050920
  Receipt Date: 20050801
  Transmission Date: 20060218
  Serious: Yes (Other)
  Sender: FDA-Public Use
  Company Number: US-MERCK-0508USA00103

PATIENT
  Age: 72 Year
  Sex: Female

DRUGS (13)
  1. VIOXX [Suspect]
     Route: 048
     Dates: start: 20020121, end: 20040101
  2. ENALAPRIL MALEATE [Concomitant]
     Route: 065
  3. CLIMARA [Concomitant]
     Route: 065
  4. ESTRACE [Concomitant]
     Route: 065
  5. SUDAL [Concomitant]
     Route: 065
  6. DETROL [Concomitant]
     Route: 065
  7. CALCIUM (UNSPECIFIED) [Concomitant]
     Route: 065
  8. GLUCOSAMINE SULFATE [Concomitant]
     Route: 065
  9. VITAMIN E [Concomitant]
     Route: 065
  10. ASCORBIC ACID [Concomitant]
     Route: 065
  11. GARLIC EXTRACT [Concomitant]
     Route: 065
  12. ASPIRIN [Concomitant]
     Route: 065
  13. DOCUSATE CALCIUM [Concomitant]
     Route: 065

REACTIONS (9)
  - ASTHMA [None]
  - BLOOD SODIUM DECREASED [None]
  - CAROTID ARTERY DISEASE [None]
  - CEREBROVASCULAR ACCIDENT [None]
  - DEHYDRATION [None]
  - HEADACHE [None]
  - JOINT SWELLING [None]
  - RESTLESS LEGS SYNDROME [None]
  - UPPER RESPIRATORY TRACT INFECTION [None]
